FAERS Safety Report 7905842-3 (Version None)
Quarter: 2011Q4

REPORT INFORMATION
  Report Type: 
  Country: None (occurrence: None)
  Receive Date: 20111108
  Receipt Date: 20111006
  Transmission Date: 20120403
  Serious: Yes (Hospitalization, Disabling)
  Sender: FDA-Public Use
  Company Number: ZA-ACCORD-010237

PATIENT
  Age: 85 Year
  Sex: Male
  Weight: 55 kg

DRUGS (4)
  1. TRAMAHEXAL (TRAMAHEXAL) [Concomitant]
  2. BICALUTAMIDE [Suspect]
     Indication: PROSTATE CANCER
     Dosage: 50.00-MG-1.0DAYS
     Dates: start: 20110419, end: 20110731
  3. LUCRIN (LUCRIN) [Concomitant]
  4. VIBROCIL (VIBROCIL) [Concomitant]

REACTIONS (22)
  - PLATELET COUNT DECREASED [None]
  - ABASIA [None]
  - BLOOD BILIRUBIN INCREASED [None]
  - GASTROINTESTINAL HAEMORRHAGE [None]
  - ASTHENIA [None]
  - OXYGEN SATURATION DECREASED [None]
  - INTERNATIONAL NORMALISED RATIO INCREASED [None]
  - UNRESPONSIVE TO STIMULI [None]
  - DISORIENTATION [None]
  - METASTASES TO BONE [None]
  - CONTUSION [None]
  - GINGIVAL BLEEDING [None]
  - RESPIRATORY RATE DECREASED [None]
  - ANAEMIA [None]
  - SEPSIS [None]
  - SKIN INFECTION [None]
  - NAUSEA [None]
  - APLASTIC ANAEMIA [None]
  - PRODUCTIVE COUGH [None]
  - PENILE HAEMORRHAGE [None]
  - DYSPNOEA [None]
  - STAPHYLOCOCCAL INFECTION [None]
